FAERS Safety Report 9404708 (Version 5)
Quarter: 2013Q3

REPORT INFORMATION
  Report Type: Spontaneous
  Country: GB (occurrence: GB)
  Receive Date: 20130717
  Receipt Date: 20130910
  Transmission Date: 20140515
  Serious: Yes (Life-Threatening, Hospitalization, Other)
  Sender: FDA-Public Use
  Company Number: PHFR2013GB003985

PATIENT
  Age: 27 Year
  Sex: Female

DRUGS (18)
  1. CLOZARIL [Suspect]
     Indication: SCHIZOPHRENIA
     Dosage: 250 MG,
     Route: 048
     Dates: start: 20110416, end: 20130710
  2. VENLAFAXINE [Concomitant]
     Dosage: UNK
  3. HYOSCINE HYDROBROMIDE [Concomitant]
     Dosage: UNK
  4. TOPIRAMATE [Concomitant]
     Dosage: UNK
  5. DESMOPRESSIN [Concomitant]
     Dosage: UNK
  6. OMEPRAZOLE [Concomitant]
     Dosage: UNK
  7. CERAZETTE [Concomitant]
     Dosage: UNK
  8. MEBEVERINE [Concomitant]
     Dosage: UNK
  9. SENNA [Concomitant]
     Dosage: UNK
  10. SALBUTAMOL [Concomitant]
     Dosage: UNK
  11. LACTULOSE [Concomitant]
     Dosage: UNK
  12. CO-CODAMOL [Concomitant]
     Dosage: UNK
  13. DIAZEPAM [Concomitant]
     Dosage: UNK
  14. AMISULPRIDE [Concomitant]
     Dosage: UNK
  15. FOLIC ACID [Concomitant]
     Dosage: UNK
  16. TRAMADOL [Concomitant]
     Dosage: UNK
  17. BECLOMETASONE [Concomitant]
     Dosage: UNK
  18. PARACETAMOL [Concomitant]
     Dosage: UNK

REACTIONS (5)
  - Pancytopenia [Recovered/Resolved]
  - Platelet count decreased [Recovered/Resolved]
  - Haemoglobin decreased [Recovered/Resolved]
  - Rectal haemorrhage [Recovered/Resolved]
  - Haemorrhoidal haemorrhage [Recovered/Resolved]
